FAERS Safety Report 7598267-4 (Version None)
Quarter: 2011Q3

REPORT INFORMATION
  Report Type: 
  Country: None (occurrence: None)
  Receive Date: 20110708
  Receipt Date: 20110629
  Transmission Date: 20111222
  Serious: Yes (Hospitalization)
  Sender: FDA-Public Use
  Company Number: FR-ASTRAZENECA-2011SE19781

PATIENT
  Age: 488 Month
  Sex: Male
  Weight: 130 kg

DRUGS (2)
  1. FORADIL [Concomitant]
     Indication: ASTHMA
  2. NEXIUM [Suspect]
     Indication: GASTROOESOPHAGEAL REFLUX DISEASE
     Route: 048
     Dates: start: 20080101, end: 20110401

REACTIONS (4)
  - HYPOMAGNESAEMIA [None]
  - HYPOCALCAEMIA [None]
  - HYPOKALAEMIA [None]
  - HYPOPARATHYROIDISM [None]
